FAERS Safety Report 23884907 (Version 2)
Quarter: 2024Q2

REPORT INFORMATION
  Report Type: Spontaneous
  Country: JP (occurrence: JP)
  Receive Date: 20240522
  Receipt Date: 20240611
  Transmission Date: 20240716
  Serious: Yes (Death, Other)
  Sender: FDA-Public Use
  Company Number: JP-CHUGAI-2024016467

PATIENT
  Age: 61 Year
  Sex: Female

DRUGS (2)
  1. TECENTRIQ [Suspect]
     Active Substance: ATEZOLIZUMAB
     Indication: Non-small cell lung cancer
     Route: 065
     Dates: start: 20240415, end: 2024
  2. ISONIAZID [Concomitant]
     Active Substance: ISONIAZID
     Dates: start: 202403

REACTIONS (4)
  - Platelet count decreased [Fatal]
  - Hepatic function abnormal [Unknown]
  - Lung disorder [Unknown]
  - Pyrexia [Unknown]

NARRATIVE: CASE EVENT DATE: 20240424
